FAERS Safety Report 19854672 (Version 1)
Quarter: 2021Q3

REPORT INFORMATION
  Report Type: Spontaneous
  Country: SE (occurrence: SE)
  Receive Date: 20210920
  Receipt Date: 20210920
  Transmission Date: 20211014
  Serious: Yes (Hospitalization)
  Sender: FDA-Public Use
  Company Number: NVSC2021SE209703

PATIENT
  Age: 12 Year
  Sex: Male

DRUGS (4)
  1. BUCCOLAM [Concomitant]
     Active Substance: MIDAZOLAM HYDROCHLORIDE
     Indication: PRODUCT USED FOR UNKNOWN INDICATION
     Dosage: UNK (VID BEHOV)
     Route: 065
  2. TRILEPTAL [Suspect]
     Active Substance: OXCARBAZEPINE
     Indication: EPILEPSY
     Dosage: UNK
     Route: 065
     Dates: start: 20210526, end: 20210613
  3. FRISIUM [Concomitant]
     Active Substance: CLOBAZAM
     Indication: PRODUCT USED FOR UNKNOWN INDICATION
     Dosage: UNK (HALF + 1 HALF PER DAG)
     Route: 065
  4. LAMOTRIGINE. [Concomitant]
     Active Substance: LAMOTRIGINE
     Indication: PRODUCT USED FOR UNKNOWN INDICATION
     Dosage: UNK (100 + 100 MG)
     Route: 065

REACTIONS (6)
  - Pyrexia [Recovered/Resolved]
  - Blister [Recovering/Resolving]
  - Eating disorder [Recovered/Resolved]
  - Stevens-Johnson syndrome [Unknown]
  - Pain [Recovered/Resolved]
  - Erythema multiforme [Unknown]

NARRATIVE: CASE EVENT DATE: 20210612
